FAERS Safety Report 24456699 (Version 5)
Quarter: 2025Q3

REPORT INFORMATION
  Report Type: Report from Study
  Country: US (occurrence: US)
  Receive Date: 20241017
  Receipt Date: 20250912
  Transmission Date: 20251021
  Serious: No
  Sender: SUNOVION
  Company Number: US-SUMITOMO PHARMA SWITZERLAND GMBH-2024SPA003779

PATIENT
  Age: 73 Year
  Sex: Male
  Weight: 99.773 kg

DRUGS (1)
  1. ORGOVYX [Suspect]
     Active Substance: RELUGOLIX
     Indication: Prostate cancer
     Dosage: 120 MG, QD
     Route: 048
     Dates: start: 20241002

REACTIONS (13)
  - Presyncope [Unknown]
  - Blood testosterone abnormal [Unknown]
  - Prostatic specific antigen abnormal [Unknown]
  - Blood pressure decreased [Unknown]
  - Testicular pain [Recovering/Resolving]
  - Pollakiuria [Unknown]
  - Urinary incontinence [Unknown]
  - Blood pressure increased [Unknown]
  - Blood glucose increased [Unknown]
  - Hot flush [Recovering/Resolving]
  - Fatigue [Unknown]
  - Asthenia [Unknown]
  - Incorrect dose administered [Recovered/Resolved]
